FAERS Safety Report 9102313 (Version 2)
Quarter: 2014Q3

REPORT INFORMATION
  Report Type: Spontaneous
  Country: US (occurrence: US)
  Receive Date: 20130218
  Receipt Date: 20140714
  Transmission Date: 20150326
  Serious: Yes (Hospitalization, Other)
  Sender: FDA-Public Use
  Company Number: US-009507513-1302USA006681

PATIENT
  Sex: Female
  Weight: 58.8 kg

DRUGS (1)
  1. NUVARING [Suspect]
     Active Substance: ETHINYL ESTRADIOL\ETONOGESTREL
     Indication: CONTRACEPTION
     Dosage: UNK
     Route: 067
     Dates: start: 20070626

REACTIONS (6)
  - Deep vein thrombosis [Unknown]
  - May-Thurner syndrome [Unknown]
  - Thrombectomy [Unknown]
  - Arterial repair [Unknown]
  - Hyponatraemia [Unknown]
  - Exploratory operation [Unknown]

NARRATIVE: CASE EVENT DATE: 20070814
